FAERS Safety Report 15899955 (Version 1)
Quarter: 2019Q1

REPORT INFORMATION
  Report Type: Spontaneous
  Country: JP (occurrence: JP)
  Receive Date: 20190201
  Receipt Date: 20190201
  Transmission Date: 20190417
  Serious: Yes (Hospitalization, Other)
  Sender: FDA-Public Use
  Company Number: JP-ELI_LILLY_AND_COMPANY-JP201812011714

PATIENT
  Age: 69 Year
  Sex: Male

DRUGS (5)
  1. ERBITUX [Suspect]
     Active Substance: CETUXIMAB
     Dosage: 250 MG/M2, 370 MG, WEEKLY (1/W)
     Route: 041
     Dates: end: 201812
  2. DOCETAXEL. [Concomitant]
     Active Substance: DOCETAXEL
     Indication: OROPHARYNGEAL CANCER
     Dosage: UNK, UNKNOWN
     Route: 065
     Dates: start: 20180919
  3. FLUOROURACIL. [Concomitant]
     Active Substance: FLUOROURACIL
     Indication: OROPHARYNGEAL CANCER
     Dosage: UNK, UNKNOWN
     Route: 065
     Dates: start: 20180919
  4. ERBITUX [Suspect]
     Active Substance: CETUXIMAB
     Indication: OROPHARYNGEAL CANCER
     Dosage: 400 MG/M2, 590 MG,  UNKNOWN
     Route: 041
     Dates: start: 20181024
  5. CISPLATIN. [Concomitant]
     Active Substance: CISPLATIN
     Indication: OROPHARYNGEAL CANCER
     Dosage: UNK UNK, UNKNOWN
     Route: 065
     Dates: start: 20180919

REACTIONS (6)
  - Radiation oesophagitis [Recovering/Resolving]
  - Melaena [Recovering/Resolving]
  - Pneumonia [Unknown]
  - Anaemia [Unknown]
  - Cardiac failure [Unknown]
  - Interstitial lung disease [Recovered/Resolved]

NARRATIVE: CASE EVENT DATE: 2018
